FAERS Safety Report 7369918-4 (Version None)
Quarter: 2011Q1

REPORT INFORMATION
  Report Type: 
  Country: None (occurrence: None)
  Receive Date: 20110323
  Receipt Date: 20110318
  Transmission Date: 20110831
  Serious: Yes (Other)
  Sender: FDA-Public Use
  Company Number: DE-PFIZER INC-2011034210

PATIENT
  Age: 39 Year
  Sex: Male
  Weight: 74 kg

DRUGS (2)
  1. TREVILOR RETARD [Suspect]
     Indication: DEPRESSION
     Dosage: 37.5 MG, 1X/DAY
     Route: 048
     Dates: start: 20110111, end: 20110116
  2. TREVILOR RETARD [Suspect]
     Dosage: 75 MG, 1X/DAY
     Route: 048
     Dates: start: 20110117, end: 20110205

REACTIONS (2)
  - ENTEROCOLITIS INFECTIOUS [None]
  - PANCREATITIS [None]
